FAERS Safety Report 7076916-7 (Version None)
Quarter: 2010Q4

REPORT INFORMATION
  Report Type: 
  Country: None (occurrence: None)
  Receive Date: 20101029
  Receipt Date: 20101029
  Transmission Date: 20110411
  Serious: Yes (Other)
  Sender: FDA-Public Use
  Company Number: None

PATIENT
  Age: 55 Year
  Sex: Female
  Weight: 79.3795 kg

DRUGS (1)
  1. OSMOPREP [Suspect]
     Indication: COLONOSCOPY
     Dosage: 32 TABLETS FOLLOWED DIRECTION PO
     Route: 048
     Dates: start: 20100916, end: 20100916

REACTIONS (3)
  - CHEMICAL BURN OF SKIN [None]
  - EXCORIATION [None]
  - PAIN [None]
